FAERS Safety Report 8012253-1 (Version None)
Quarter: 2011Q4

REPORT INFORMATION
  Report Type: 
  Country: None (occurrence: None)
  Receive Date: 20111228
  Receipt Date: 20111222
  Transmission Date: 20120403
  Serious: Yes (Other)
  Sender: FDA-Public Use
  Company Number: US-PFIZER INC-2005036330

PATIENT
  Sex: Male

DRUGS (3)
  1. XANAX [Suspect]
     Indication: NEUROPATHY PERIPHERAL
     Dosage: UNK
     Route: 048
  2. ELAVIL [Suspect]
     Dosage: UNK
  3. XANAX [Suspect]
     Dosage: 5 MG, 3X/DAY
     Route: 048

REACTIONS (8)
  - DEPRESSION [None]
  - DRUG INEFFECTIVE [None]
  - AMNESIA [None]
  - SPEECH DISORDER [None]
  - ANXIETY [None]
  - DISTURBANCE IN ATTENTION [None]
  - PAIN [None]
  - CONFUSIONAL STATE [None]
